FAERS Safety Report 5950371-X (Version None)
Quarter: 2008Q4

REPORT INFORMATION
  Report Type: 
  Country: None (occurrence: None)
  Receive Date: 20081112
  Receipt Date: 20081105
  Transmission Date: 20090506
  Serious: Yes (Other)
  Sender: FDA-Public Use
  Company Number: PHHY2008BR27538

PATIENT
  Age: 67 Year
  Sex: Male

DRUGS (1)
  1. FORASEQ [Suspect]

REACTIONS (1)
  - WEIGHT DECREASED [None]
